FAERS Safety Report 5249174-3 (Version None)
Quarter: 2007Q1

REPORT INFORMATION
  Report Type: 
  Country: None (occurrence: None)
  Receive Date: 20070228
  Receipt Date: 20070221
  Transmission Date: 20070707
  Serious: Yes (Death, Other)
  Sender: FDA-Public Use
  Company Number: PHBS2007JP03329

PATIENT
  Age: 35 Year
  Sex: Male

DRUGS (4)
  1. CYCLOSPORINE [Suspect]
     Route: 065
  2. METHOTREXATE [Concomitant]
  3. TACROLIMUS [Concomitant]
  4. GANCICLOVIR [Concomitant]

REACTIONS (4)
  - ADENOVIRAL HAEMORRHAGIC CYSTITIS [None]
  - ENCEPHALOPATHY [None]
  - PNEUMONIA [None]
  - POSTRENAL FAILURE [None]
